FAERS Safety Report 9118008 (Version 1)
Quarter: 2013Q1

REPORT INFORMATION
  Report Type: Report from Study
  Country: US (occurrence: US)
  Receive Date: 20130129
  Receipt Date: 20130129
  Transmission Date: 20140127
  Serious: No
  Sender: FDA-Public Use
  Company Number: US-ABBOTT-12P-163-0937222-00

PATIENT
  Sex: Female

DRUGS (14)
  1. HUMIRA 40 MG/0.8 ML PEN [Suspect]
     Indication: PSORIATIC ARTHROPATHY
     Dates: start: 2006
  2. METFORMIN [Concomitant]
     Indication: DIABETES MELLITUS
  3. LANSOPRAZOLE [Concomitant]
     Indication: HYPERLIPIDAEMIA
  4. IRON [Concomitant]
     Indication: ANAEMIA
  5. JANUVIA [Concomitant]
     Indication: DIABETES MELLITUS
  6. VITAMIN D [Concomitant]
     Indication: VITAMIN SUPPLEMENTATION
  7. ETODOLAC [Concomitant]
     Indication: ARTHRITIS
  8. MECLIZINE [Concomitant]
     Indication: VERTIGO
  9. ANTIHYPERTENSIVES [Concomitant]
     Indication: HYPERTENSION
  10. TRICOR [Concomitant]
     Indication: HYPERLIPIDAEMIA
  11. LEVOTHYROXINE [Concomitant]
     Indication: HYPOTHYROIDISM
  12. LEXAPRO [Concomitant]
     Indication: DEPRESSION
  13. DICYCLOMINE [Concomitant]
     Indication: ABDOMINAL PAIN UPPER
  14. ZETIA [Concomitant]
     Indication: HYPERLIPIDAEMIA

REACTIONS (4)
  - Social avoidant behaviour [Not Recovered/Not Resolved]
  - Fatigue [Not Recovered/Not Resolved]
  - Personality change [Not Recovered/Not Resolved]
  - Therapeutic response decreased [Not Recovered/Not Resolved]
